FAERS Safety Report 5171050-5 (Version None)
Quarter: 2006Q4

REPORT INFORMATION
  Report Type: 
  Country: None (occurrence: None)
  Receive Date: 20061213
  Receipt Date: 20061109
  Transmission Date: 20070319
  Serious: Yes (Other)
  Sender: FDA-Public Use
  Company Number: US-GLAXOSMITHKLINE-A0626939A

PATIENT
  Sex: Male

DRUGS (2)
  1. ADVAIR DISKUS 100/50 [Suspect]
     Indication: DRUG USE FOR UNKNOWN INDICATION
     Route: 055
  2. SEREVENT [Suspect]
     Indication: DRUG USE FOR UNKNOWN INDICATION
     Route: 055

REACTIONS (7)
  - DYSPHONIA [None]
  - LARYNGEAL DYSPLASIA [None]
  - LARYNGEAL NEOPLASM [None]
  - LIP ULCERATION [None]
  - MOUTH ULCERATION [None]
  - NONSPECIFIC REACTION [None]
  - TONGUE ULCERATION [None]
